FAERS Safety Report 21189267 (Version 1)
Quarter: 2022Q3

REPORT INFORMATION
  Report Type: Spontaneous
  Country: US (occurrence: None)
  Receive Date: 20220808
  Receipt Date: 20220808
  Transmission Date: 20221026
  Serious: No
  Sender: FDA-Public Use
  Company Number: None

PATIENT
  Sex: Female

DRUGS (1)
  1. OCREVUS [Suspect]
     Active Substance: OCRELIZUMAB
     Indication: Multiple sclerosis
     Dosage: 300MG/10ML??RX#1:  INFUSE 300MG INTRAVENOUSLY INITIALLY THEN AGAIN 2 WEEKS LATER?
     Route: 042
     Dates: start: 20220211

REACTIONS (2)
  - Hypersensitivity [None]
  - Therapy cessation [None]
